FAERS Safety Report 8166926-0 (Version None)
Quarter: 2012Q1

REPORT INFORMATION
  Report Type: 
  Country: None (occurrence: None)
  Receive Date: 20120221
  Receipt Date: 20120126
  Transmission Date: 20120608
  Serious: Yes (Life-Threatening, Hospitalization)
  Sender: FDA-Public Use
  Company Number: 54973

PATIENT
  Age: 79 Year
  Sex: Male

DRUGS (3)
  1. HYLAND'S RESTFUL LEGS [Suspect]
     Indication: PRURITUS
     Dosage: 2 TABLETS ON 01/23/2012
     Dates: start: 20120123
  2. HYLAND'S RESTFUL LEGS [Suspect]
     Indication: FORMICATION
     Dosage: 2 TABLETS ON 01/23/2012
     Dates: start: 20120123
  3. HYLAND'S RESTFUL LEGS [Suspect]
     Indication: PARAESTHESIA
     Dosage: 2 TABLETS ON 01/23/2012
     Dates: start: 20120123

REACTIONS (2)
  - FALL [None]
  - LOSS OF CONSCIOUSNESS [None]
